FAERS Safety Report 7792084-8 (Version None)
Quarter: 2011Q4

REPORT INFORMATION
  Report Type: 
  Country: None (occurrence: None)
  Receive Date: 20111003
  Receipt Date: 20110929
  Transmission Date: 20120403
  Serious: Yes (Other)
  Sender: FDA-Public Use
  Company Number: US-CEPHALON-2011005174

PATIENT
  Sex: Female
  Weight: 74 kg

DRUGS (4)
  1. ATENOLOL [Concomitant]
  2. NUVIGIL [Suspect]
     Indication: SLEEP DISORDER
     Route: 048
     Dates: start: 20110401, end: 20110801
  3. LEVOXYL [Concomitant]
  4. URSODIOL [Concomitant]
     Dates: start: 20110401, end: 20110801

REACTIONS (1)
  - BILIARY CIRRHOSIS PRIMARY [None]
